FAERS Safety Report 8946934 (Version 1)
Quarter: 2012Q4

REPORT INFORMATION
  Report Type: 
  Country: CA (occurrence: CA)
  Receive Date: 20121205
  Receipt Date: 20121205
  Transmission Date: 20130627
  Serious: Yes (Hospitalization, Other)
  Sender: FDA-Public Use
  Company Number: CA-ELI_LILLY_AND_COMPANY-CA201211008241

PATIENT
  Age: 60 Year
  Sex: Female

DRUGS (6)
  1. FORTEO [Suspect]
     Indication: OSTEOPOROSIS
     Dosage: 20 ug, qd
     Route: 058
     Dates: start: 20120827, end: 201209
  2. AZATHIOPRINE [Concomitant]
     Dosage: UNK, unknown
     Route: 065
  3. ELTROXIN [Concomitant]
     Dosage: UNK, unknown
     Route: 065
  4. PANTOLOC                           /01263204/ [Concomitant]
     Dosage: UNK, unknown
     Route: 065
  5. AMITRIPTYLINE [Concomitant]
     Dosage: UNK, unknown
     Route: 065
  6. OXYGEN [Concomitant]
     Dosage: UNK, unknown
     Route: 065

REACTIONS (3)
  - Infection [Not Recovered/Not Resolved]
  - Lung disorder [Not Recovered/Not Resolved]
  - Blood pressure decreased [Not Recovered/Not Resolved]
